FAERS Safety Report 8276834-2 (Version None)
Quarter: 2012Q2

REPORT INFORMATION
  Report Type: 
  Country: None (occurrence: None)
  Receive Date: 20120412
  Receipt Date: 20120330
  Transmission Date: 20120825
  Serious: Yes (Life-Threatening, Other)
  Sender: FDA-Public Use
  Company Number: KR-RANBAXY-2012RR-55443

PATIENT
  Age: 56 Year
  Sex: Female

DRUGS (13)
  1. PROPRANOLOL [Concomitant]
     Indication: CEREBRAL HAEMORRHAGE
  2. NIFEDIPINE [Concomitant]
     Indication: HYPERTENSION
     Route: 065
  3. ASPIRIN [Concomitant]
     Indication: HYPERTENSION
     Route: 065
  4. ISOTONIC SODIUM CHLORIDE [Suspect]
     Indication: SUPPORTIVE CARE
     Route: 065
  5. CYCLOPHOSPHAMIDE [Suspect]
     Indication: CHEMOTHERAPY MULTIPLE AGENTS SYSTEMIC
     Dosage: 900 MG, UNK
     Route: 042
  6. PROPRANOLOL [Concomitant]
     Indication: HYPERTENSION
     Dosage: UNK
     Route: 065
  7. ENALAPRIL MALEATE [Suspect]
     Indication: HYPERTENSION
     Dosage: 10 MG, UNK
     Route: 065
  8. NIFEDIPINE [Concomitant]
     Indication: CEREBRAL HAEMORRHAGE
  9. CYCLOPHOSPHAMIDE [Suspect]
     Dosage: 720 MG, 20% REDUCTION FROM THE FIRST CYCLE DOSE
     Route: 042
  10. DOXORUBICIN HCL [Suspect]
     Dosage: 20% REDUCTION FROM THE FIRTS CYCLE DOSE
     Route: 065
  11. ASPIRIN [Concomitant]
     Indication: CEREBRAL HAEMORRHAGE
  12. ENALAPRIL MALEATE [Suspect]
     Indication: CEREBRAL HAEMORRHAGE
  13. DOXORUBICIN HCL [Suspect]
     Indication: CHEMOTHERAPY MULTIPLE AGENTS SYSTEMIC
     Dosage: UNK
     Route: 065

REACTIONS (3)
  - HYPONATRAEMIA [None]
  - GRAND MAL CONVULSION [None]
  - FLUID RETENTION [None]
